FAERS Safety Report 23387830 (Version 1)
Quarter: 2024Q1

REPORT INFORMATION
  Report Type: Spontaneous
  Country: US (occurrence: None)
  Receive Date: 20240109
  Receipt Date: 20240109
  Transmission Date: 20240410
  Serious: Yes (Hospitalization)
  Sender: FDA-Public Use
  Company Number: None

PATIENT
  Age: 56 Year
  Sex: Female

DRUGS (1)
  1. VIGABATRIN [Suspect]
     Active Substance: VIGABATRIN
     Indication: Idiopathic generalised epilepsy
     Dosage: 1500MG TWICE DAILY ORAL
     Route: 048
     Dates: start: 202103

REACTIONS (1)
  - Disease complication [None]

NARRATIVE: CASE EVENT DATE: 20240108
